FAERS Safety Report 8619859-7 (Version None)
Quarter: 2012Q3

REPORT INFORMATION
  Report Type: 
  Country: None (occurrence: None)
  Receive Date: 20120824
  Receipt Date: 20120806
  Transmission Date: 20120928
  Serious: Yes (Hospitalization)
  Sender: FDA-Public Use
  Company Number: JP-009507513-1208JPN004878

PATIENT

DRUGS (5)
  1. REMERON [Suspect]
     Indication: SLEEP DISORDER
     Dosage: 750 MG, QD
     Route: 048
     Dates: start: 20120727, end: 20120727
  2. PAXIL [Concomitant]
     Indication: PANIC DISORDER
  3. REMERON [Suspect]
     Indication: DEPRESSION
     Dosage: 750 MG, QD
     Route: 048
  4. PAXIL [Concomitant]
     Indication: DEPRESSION
     Dosage: 25 MG, UNK
     Route: 048
  5. MEILAX [Concomitant]
     Indication: ANXIETY
     Dosage: 1 MG, UNK
     Route: 048

REACTIONS (1)
  - OVERDOSE [None]
